FAERS Safety Report 11769280 (Version 5)
Quarter: 2016Q1

REPORT INFORMATION
  Report Type: Report from Study
  Country: HU (occurrence: HU)
  Receive Date: 20151123
  Receipt Date: 20160328
  Transmission Date: 20160525
  Serious: Yes (Hospitalization)
  Sender: FDA-Public Use
  Company Number: HU-TEVA-608580ISR

PATIENT
  Age: 67 Year
  Sex: Female
  Weight: 55 kg

DRUGS (22)
  1. ABT-888 (BLINDED) [Suspect]
     Active Substance: VELIPARIB
     Indication: COLORECTAL CANCER
     Dosage: DAY 2-5 OF EACH 14 DAY CYCLE (2 IN 1 D)
     Route: 048
     Dates: start: 20150810
  2. QUAMATEL [Concomitant]
     Active Substance: FAMOTIDINE
     Indication: HYPERCHLORHYDRIA
     Dosage: 40 MILLIGRAM DAILY;
     Route: 041
     Dates: start: 20150909, end: 20150909
  3. PREDUCTAL MR [Concomitant]
     Active Substance: TRIMETAZIDINE DIHYDROCHLORIDE
     Indication: MYOCARDIAL ISCHAEMIA
     Dosage: 4 DOSAGE FORMS DAILY;
     Route: 048
     Dates: start: 2013
  4. 5-FLUOROURACIL (OPEN LABEL) [Suspect]
     Active Substance: FLUOROURACIL
     Indication: COLORECTAL CANCER
     Dosage: OVER 15 MINS; DAY 1 OF EACH 14 DAY CYCLE (2400MG/M2)
     Route: 042
     Dates: start: 20150812, end: 20150812
  5. QUAMATEL [Concomitant]
     Active Substance: FAMOTIDINE
     Dosage: 40 MILLIGRAM DAILY;
     Route: 041
     Dates: start: 20151008, end: 20151009
  6. OROSET [Concomitant]
     Indication: PROPHYLAXIS OF NAUSEA AND VOMITING
     Dosage: 16 MILLIGRAM DAILY;
     Route: 048
     Dates: start: 20150814
  7. LEUCOVORIN (FOLINIC ACID) [Concomitant]
     Active Substance: LEUCOVORIN
     Indication: COLORECTAL CANCER
     Dosage: DAY 1 OF EACH 14 DAY CYCLE (400MG/M2)
     Route: 042
     Dates: start: 20150812
  8. IRINOTECAN (OPEN LABEL) [Suspect]
     Active Substance: IRINOTECAN
     Indication: COLORECTAL CANCER
     Dosage: DAY 1 OF EACH 14 DAY CYCLE (180 MG/M2)
     Route: 042
     Dates: start: 20150812
  9. AUGMENTIN DUO [Concomitant]
     Active Substance: AMOXICILLIN\CLAVULANATE POTASSIUM
     Indication: PYREXIA
     Dosage: 2 GRAM DAILY;
     Route: 048
     Dates: start: 20150826, end: 20150830
  10. PANADOL [Concomitant]
     Active Substance: ACETAMINOPHEN
     Indication: PYREXIA
     Dosage: 1000 MILLIGRAM DAILY;
     Route: 048
     Dates: start: 20150902, end: 20150902
  11. PANADOL [Concomitant]
     Active Substance: ACETAMINOPHEN
     Dosage: 5000 MILLIGRAM DAILY;
     Route: 048
     Dates: start: 20150902, end: 20150902
  12. ATROPIN [Concomitant]
     Active Substance: ATROPINE
     Indication: PREMEDICATION
     Dosage: EVERY CHEMOTHERAPY CYCLE
     Route: 042
     Dates: start: 20150812
  13. ONDANSETRON [Concomitant]
     Active Substance: ONDANSETRON
     Indication: VOMITING
     Dosage: 16 MILLIGRAM DAILY;
     Route: 041
     Dates: start: 20150909, end: 20150909
  14. ONDANSETRON [Concomitant]
     Active Substance: ONDANSETRON
     Dosage: 32 MILLIGRAM DAILY;
     Route: 041
     Dates: start: 20150910, end: 20150910
  15. ONDANSETRON [Concomitant]
     Active Substance: ONDANSETRON
     Dosage: 16 MILLIGRAM DAILY;
     Route: 041
     Dates: start: 20150911, end: 20150911
  16. QUAMATEL [Concomitant]
     Active Substance: FAMOTIDINE
     Dosage: 80 MILLIGRAM DAILY;
     Route: 041
     Dates: start: 20150923, end: 20150924
  17. ONDANSETRON [Concomitant]
     Active Substance: ONDANSETRON
     Dosage: 16 MILLIGRAM DAILY;
     Route: 048
     Dates: start: 20150912, end: 20150915
  18. ONDANSETRON [Concomitant]
     Active Substance: ONDANSETRON
     Dosage: 16 MILLIGRAM DAILY;
     Route: 041
     Dates: start: 20151008, end: 20151009
  19. 5-FLUOROURACIL (OPEN LABEL) [Suspect]
     Active Substance: FLUOROURACIL
     Dosage: OVER 46 HRS; DAY 1 OF EACH 14 DAY CYCLE (2400MG/M2)
     Route: 042
     Dates: start: 20150812
  20. FILGRASTIM [Concomitant]
     Active Substance: FILGRASTIM
     Indication: NEUTROPENIA
     Dosage: 48 IU (INTERNATIONAL UNIT) DAILY;
     Route: 058
     Dates: start: 20150826, end: 20150830
  21. VALSARTAN. [Concomitant]
     Active Substance: VALSARTAN
     Indication: HYPERTENSION
     Dosage: 80 MILLIGRAM DAILY;
     Route: 048
     Dates: start: 2013
  22. FILGRASTIM [Concomitant]
     Active Substance: FILGRASTIM
     Indication: NEUTROPENIA
     Dosage: 30 IU (INTERNATIONAL UNIT) DAILY;
     Route: 058
     Dates: start: 20151007, end: 20151007

REACTIONS (1)
  - Febrile neutropenia [Recovered/Resolved]

NARRATIVE: CASE EVENT DATE: 20151016
